FAERS Safety Report 10696561 (Version 2)
Quarter: 2015Q1

REPORT INFORMATION
  Report Type: Report from Study
  Country: CA (occurrence: CA)
  Receive Date: 20150107
  Receipt Date: 20150324
  Transmission Date: 20150721
  Serious: Yes (Hospitalization)
  Sender: FDA-Public Use
  Company Number: CA-EXELIXIS-XL18414005069

PATIENT
  Age: 74 Year
  Sex: Female
  Weight: 91.4 kg

DRUGS (18)
  1. METAMUCIL [Concomitant]
     Active Substance: PLANTAGO SEED
  2. FOLATE [Concomitant]
     Active Substance: FOLATE SODIUM
  3. XL184 [Suspect]
     Active Substance: CABOZANTINIB
     Indication: RENAL CELL CARCINOMA
     Dosage: 60 MG, QD
     Route: 048
     Dates: start: 20140910, end: 20141229
  4. VITAMIN D [Concomitant]
     Active Substance: CHOLECALCIFEROL
  5. ZOPICLONE [Concomitant]
     Active Substance: ZOPICLONE
  6. MAGNESIUM [Concomitant]
     Active Substance: MAGNESIUM
  7. VENTOLIN [Concomitant]
     Active Substance: ALBUTEROL SULFATE
  8. SYNTHROID [Concomitant]
     Active Substance: LEVOTHYROXINE SODIUM
  9. DILTIAZEM [Concomitant]
     Active Substance: DILTIAZEM
  10. FLONASE [Concomitant]
     Active Substance: FLUTICASONE PROPIONATE
  11. MAXERAN [Concomitant]
     Active Substance: METOCLOPRAMIDE HYDROCHLORIDE
  12. DIOVAL [Concomitant]
  13. LAX-A-DAY [Concomitant]
  14. ELAVIL [Concomitant]
     Active Substance: AMITRIPTYLINE HYDROCHLORIDE
  15. ARTHROTEC [Concomitant]
     Active Substance: DICLOFENAC SODIUM\MISOPROSTOL
  16. FLOVENT [Concomitant]
     Active Substance: FLUTICASONE PROPIONATE
  17. COVERSYL [Concomitant]
     Active Substance: PERINDOPRIL
  18. FERROMAX [Concomitant]

REACTIONS (1)
  - Hyperkalaemia [Recovered/Resolved with Sequelae]

NARRATIVE: CASE EVENT DATE: 20141229
